FAERS Safety Report 5106270-9 (Version None)
Quarter: 2006Q3

REPORT INFORMATION
  Report Type: 
  Country: None (occurrence: None)
  Receive Date: 20060918
  Receipt Date: 20031021
  Transmission Date: 20061208
  Serious: Yes (Other)
  Sender: FDA-Public Use
  Company Number: US-BAYER-200326537BWH

PATIENT
  Age: 59 Year
  Sex: Male
  Weight: 64 kg

DRUGS (5)
  1. LEVITRA [Suspect]
     Indication: ERECTILE DYSFUNCTION
     Dosage: TOTAL DAILY DOSE: 5 MG  UNIT DOSE: 5 MG
     Route: 048
     Dates: start: 20031011, end: 20031011
  2. LIPITOR [Concomitant]
  3. TENORMIN [Concomitant]
  4. NYSTATIN [Concomitant]
  5. ASPIRIN [Concomitant]

REACTIONS (3)
  - HEADACHE [None]
  - RHINITIS [None]
  - VISUAL ACUITY REDUCED [None]
